FAERS Safety Report 15931682 (Version 4)
Quarter: 2019Q4

REPORT INFORMATION
  Report Type: Spontaneous
  Country: US (occurrence: US)
  Receive Date: 20190207
  Receipt Date: 20191011
  Transmission Date: 20200122
  Serious: No
  Sender: FDA-Public Use
  Company Number: US-BIOGEN-2018BI00601188

PATIENT
  Sex: Female

DRUGS (5)
  1. NUVIGIL [Concomitant]
     Active Substance: ARMODAFINIL
     Route: 065
  2. GOODSENSE ASPIRIN ADULT [Concomitant]
     Indication: PRODUCT USED FOR UNKNOWN INDICATION
     Route: 050
  3. VITAMIN D3 MAX [Concomitant]
     Indication: PRODUCT USED FOR UNKNOWN INDICATION
     Route: 050
  4. TECFIDERA [Suspect]
     Active Substance: DIMETHYL FUMARATE
     Indication: MULTIPLE SCLEROSIS
     Dosage: MAINTENANNCE DOSE
     Route: 050
  5. DIALYVITE [Concomitant]
     Active Substance: ASCORBIC ACID\BIOTIN\CALCIUM PANTOTHENATE\COBALAMIN\FOLIC ACID\NIACINAMIDE\PYRIDOXINE HYDROCHLORIDE\RIBOFLAVIN\THIAMINE MONONITRATE
     Indication: PRODUCT USED FOR UNKNOWN INDICATION
     Route: 050

REACTIONS (17)
  - Flushing [Unknown]
  - Abdominal distension [Unknown]
  - Product dose omission [Unknown]
  - Hepatic pain [Unknown]
  - Nausea [Recovered/Resolved]
  - Muscle spasms [Unknown]
  - White blood cell count decreased [Unknown]
  - Fatigue [Recovered/Resolved]
  - Vomiting [Recovered/Resolved]
  - Somnolence [Not Recovered/Not Resolved]
  - Abdominal discomfort [Recovered/Resolved]
  - Multiple allergies [Recovered/Resolved]
  - Abdominal pain upper [Unknown]
  - Hot flush [Unknown]
  - Headache [Unknown]
  - Paraesthesia [Unknown]
  - Nasopharyngitis [Recovered/Resolved]
